FAERS Safety Report 12843276 (Version 2)
Quarter: 2016Q4

REPORT INFORMATION
  Report Type: Spontaneous
  Country: US (occurrence: US)
  Receive Date: 20161013
  Receipt Date: 20161116
  Transmission Date: 20170207
  Serious: No
  Sender: FDA-Public Use
  Company Number: US-ASTRAZENECA-2016SF05454

PATIENT
  Age: 67 Year
  Sex: Male

DRUGS (2)
  1. PRILOSEC OTC [Suspect]
     Active Substance: OMEPRAZOLE MAGNESIUM
     Route: 048
     Dates: end: 20160926
  2. PRILOSEC OTC [Suspect]
     Active Substance: OMEPRAZOLE MAGNESIUM
     Route: 048

REACTIONS (5)
  - Constipation [Recovered/Resolved]
  - Abnormal faeces [Recovered/Resolved]
  - Faeces hard [Recovered/Resolved]
  - Faeces discoloured [Recovered/Resolved]
  - Dyschezia [Recovered/Resolved]
